FAERS Safety Report 8538068-3 (Version None)
Quarter: 2012Q3

REPORT INFORMATION
  Report Type: 
  Country: None (occurrence: None)
  Receive Date: 20120725
  Receipt Date: 20120713
  Transmission Date: 20120928
  Serious: Yes (Hospitalization)
  Sender: FDA-Public Use
  Company Number: US-PFIZER INC-2011057194

PATIENT
  Sex: Female
  Weight: 45.6 kg

DRUGS (4)
  1. ZOFRAN [Concomitant]
     Indication: NAUSEA
     Dosage: UNK
     Route: 048
     Dates: start: 20101210
  2. FENTANYL [Concomitant]
     Indication: PAIN
     Dosage: UNK
     Route: 062
     Dates: start: 20101210
  3. BACTRIM DS [Concomitant]
     Indication: ANTIFUNGAL PROPHYLAXIS
     Dosage: UNK
     Route: 048
     Dates: start: 20101210
  4. CRIZOTINIB [Suspect]
     Indication: SARCOMA
     Dosage: 250 MG, 2X/DAY
     Route: 048
     Dates: start: 20110228, end: 20110314

REACTIONS (4)
  - HYPERCALCAEMIA [None]
  - VOMITING [None]
  - BACK PAIN [None]
  - DEHYDRATION [None]
